FAERS Safety Report 10286580 (Version 2)
Quarter: 2014Q3

REPORT INFORMATION
  Report Type: Report from Study
  Country: AR (occurrence: AR)
  Receive Date: 20140709
  Receipt Date: 20140819
  Transmission Date: 20150326
  Serious: Yes (Hospitalization, Other)
  Sender: FDA-Public Use
  Company Number: PHHY2014AR084140

PATIENT
  Age: 55 Year
  Sex: Female

DRUGS (1)
  1. GILENYA [Suspect]
     Active Substance: FINGOLIMOD HYDROCHLORIDE
     Indication: MULTIPLE SCLEROSIS
     Dosage: 0.5 MG, QD
     Route: 048
     Dates: start: 20140313

REACTIONS (5)
  - White blood cell count decreased [Unknown]
  - Skin haemorrhage [Unknown]
  - Blood pressure decreased [Recovered/Resolved]
  - Melanocytic naevus [Unknown]
  - Body temperature decreased [Recovered/Resolved]

NARRATIVE: CASE EVENT DATE: 201403
